FAERS Safety Report 18319902 (Version 5)
Quarter: 2023Q1

REPORT INFORMATION
  Report Type: Spontaneous
  Country: US (occurrence: None)
  Receive Date: 20200928
  Receipt Date: 20230322
  Transmission Date: 20230418
  Serious: Yes (Hospitalization, Other)
  Sender: FDA-Public Use
  Company Number: 2020SF23245

PATIENT
  Age: 17727 Day
  Sex: Female
  Weight: 100.2 kg

DRUGS (73)
  1. FARXIGA [Suspect]
     Active Substance: DAPAGLIFLOZIN PROPANEDIOL
     Indication: Type 2 diabetes mellitus
     Route: 048
     Dates: start: 20150428, end: 20150801
  2. FARXIGA [Suspect]
     Active Substance: DAPAGLIFLOZIN PROPANEDIOL
     Indication: Weight decreased
     Route: 048
     Dates: start: 20150428, end: 20150801
  3. FARXIGA [Suspect]
     Active Substance: DAPAGLIFLOZIN PROPANEDIOL
     Indication: Blood pressure decreased
     Route: 048
     Dates: start: 20150428, end: 20150801
  4. FARXIGA [Suspect]
     Active Substance: DAPAGLIFLOZIN PROPANEDIOL
     Indication: Type 2 diabetes mellitus
     Route: 048
     Dates: start: 20150817
  5. FARXIGA [Suspect]
     Active Substance: DAPAGLIFLOZIN PROPANEDIOL
     Indication: Weight decreased
     Route: 048
     Dates: start: 20150817
  6. FARXIGA [Suspect]
     Active Substance: DAPAGLIFLOZIN PROPANEDIOL
     Indication: Blood pressure decreased
     Route: 048
     Dates: start: 20150817
  7. FARXIGA [Suspect]
     Active Substance: DAPAGLIFLOZIN PROPANEDIOL
     Indication: Type 2 diabetes mellitus
     Route: 048
     Dates: start: 201504, end: 201508
  8. FARXIGA [Suspect]
     Active Substance: DAPAGLIFLOZIN PROPANEDIOL
     Indication: Weight decreased
     Route: 048
     Dates: start: 201504, end: 201508
  9. FARXIGA [Suspect]
     Active Substance: DAPAGLIFLOZIN PROPANEDIOL
     Indication: Blood pressure decreased
     Route: 048
     Dates: start: 201504, end: 201508
  10. FARXIGA [Suspect]
     Active Substance: DAPAGLIFLOZIN PROPANEDIOL
     Indication: Type 2 diabetes mellitus
     Route: 048
     Dates: start: 201504, end: 201508
  11. FARXIGA [Suspect]
     Active Substance: DAPAGLIFLOZIN PROPANEDIOL
     Indication: Weight decreased
     Route: 048
     Dates: start: 201504, end: 201508
  12. FARXIGA [Suspect]
     Active Substance: DAPAGLIFLOZIN PROPANEDIOL
     Indication: Blood pressure decreased
     Route: 048
     Dates: start: 201504, end: 201508
  13. FARXIGA [Suspect]
     Active Substance: DAPAGLIFLOZIN PROPANEDIOL
     Indication: Type 2 diabetes mellitus
     Route: 048
     Dates: end: 20160820
  14. FARXIGA [Suspect]
     Active Substance: DAPAGLIFLOZIN PROPANEDIOL
     Indication: Weight decreased
     Route: 048
     Dates: end: 20160820
  15. FARXIGA [Suspect]
     Active Substance: DAPAGLIFLOZIN PROPANEDIOL
     Indication: Blood pressure decreased
     Route: 048
     Dates: end: 20160820
  16. NOVOLOG [Concomitant]
     Active Substance: INSULIN ASPART
  17. ACYCLOVIR [Concomitant]
     Active Substance: ACYCLOVIR
  18. LANTUS [Concomitant]
     Active Substance: INSULIN GLARGINE
  19. GLUCAGON [Concomitant]
     Active Substance: GLUCAGON
  20. CEPHALEXIN [Concomitant]
     Active Substance: CEPHALEXIN
  21. DIAZEPAM [Concomitant]
     Active Substance: DIAZEPAM
  22. ACETAMINOPHEN\OXYCODONE HYDROCHLORIDE [Concomitant]
     Active Substance: ACETAMINOPHEN\OXYCODONE HYDROCHLORIDE
  23. ECONAZOLE [Concomitant]
     Active Substance: ECONAZOLE
  24. EPINEPHRINE [Concomitant]
     Active Substance: EPINEPHRINE
  25. IBUPROFEN [Concomitant]
     Active Substance: IBUPROFEN
  26. MEDROXYPROGESTERONE [Concomitant]
     Active Substance: MEDROXYPROGESTERONE
  27. BACITRACIN [Concomitant]
     Active Substance: BACITRACIN
  28. CHOLESTYRAMINE [Concomitant]
     Active Substance: CHOLESTYRAMINE
  29. AMOXICILLIN [Concomitant]
     Active Substance: AMOXICILLIN
  30. PERMETHRIN [Concomitant]
     Active Substance: PERMETHRIN
  31. KETOCONAZOLE [Concomitant]
     Active Substance: KETOCONAZOLE
  32. HUMALOG [Concomitant]
     Active Substance: INSULIN LISPRO
  33. VITAMIN B COMPLEX [Concomitant]
     Active Substance: CYANOCOBALAMIN\DEXPANTHENOL\NIACINAMIDE\PYRIDOXINE HYDROCHLORIDE\RIBOFLAVIN 5^-PHOSPHATE SODIUM\THIA
  34. CALCIUM CARBONATE [Concomitant]
     Active Substance: CALCIUM CARBONATE
  35. VANCOMYCIN [Concomitant]
     Active Substance: VANCOMYCIN
  36. ONDANSETRON [Concomitant]
     Active Substance: ONDANSETRON
  37. FAMOTIDINE [Concomitant]
     Active Substance: FAMOTIDINE
  38. DOCUSATE [Concomitant]
     Active Substance: DOCUSATE
  39. TEMAZEPAM [Concomitant]
     Active Substance: TEMAZEPAM
  40. LINEZOLID [Concomitant]
     Active Substance: LINEZOLID
  41. MIDAZOLAM [Concomitant]
     Active Substance: MIDAZOLAM
  42. DIPHENHYDRAMINE [Concomitant]
     Active Substance: DIPHENHYDRAMINE
  43. PIPERACILLIN SODIUM\TAZOBACTAM SODIUM [Concomitant]
     Active Substance: PIPERACILLIN SODIUM\TAZOBACTAM SODIUM
  44. PROPOFOL [Concomitant]
     Active Substance: PROPOFOL
  45. FENTANYL [Concomitant]
     Active Substance: FENTANYL
  46. ENOXAPARIN [Concomitant]
     Active Substance: ENOXAPARIN
  47. KETOROLAC [Concomitant]
     Active Substance: KETOROLAC TROMETHAMINE
  48. DEXTROSE [Concomitant]
     Active Substance: DEXTROSE
  49. POTASSIUM CHLORIDE [Concomitant]
     Active Substance: POTASSIUM CHLORIDE
  50. LORATADINE [Concomitant]
     Active Substance: LORATADINE
  51. CHOLECALCIFEROL [Concomitant]
     Active Substance: CHOLECALCIFEROL
  52. PRINIVIL [Concomitant]
     Active Substance: LISINOPRIL
     Route: 065
     Dates: start: 20150309
  53. VICTOZA [Concomitant]
     Active Substance: LIRAGLUTIDE
     Route: 065
     Dates: start: 20180428
  54. NEURONTIN [Concomitant]
     Active Substance: GABAPENTIN
     Route: 065
     Dates: start: 20180428
  55. WELLBUTRIN [Concomitant]
     Active Substance: BUPROPION HYDROCHLORIDE
     Route: 065
     Dates: start: 20180428
  56. ZOLOFT [Concomitant]
     Active Substance: SERTRALINE HYDROCHLORIDE
     Route: 065
     Dates: start: 20180428
  57. ZOCOR [Concomitant]
     Active Substance: SIMVASTATIN
     Route: 065
     Dates: start: 20180428
  58. DIFLUCAN [Concomitant]
     Active Substance: FLUCONAZOLE
     Route: 065
     Dates: start: 20180428
  59. VITAMIN D [Concomitant]
     Active Substance: VITAMIN D NOS
     Route: 065
     Dates: start: 20180428
  60. PROTONIX [Concomitant]
     Active Substance: PANTOPRAZOLE SODIUM
     Route: 065
     Dates: start: 20150817
  61. SINEQUAN [Concomitant]
     Active Substance: DOXEPIN HYDROCHLORIDE
     Route: 065
     Dates: start: 20150817
  62. AFLURIA NOS [Concomitant]
     Active Substance: INFLUENZA VIRUS VACCINE TRIVALENT TYPE A+B AFLURIA
  63. PNEUMOVAX 23 [Concomitant]
     Active Substance: PNEUMOCOCCAL VACCINE, POLYVALENT 23
  64. BUPROPION [Concomitant]
     Active Substance: BUPROPION
  65. DOXEPIN [Concomitant]
     Active Substance: DOXEPIN
  66. LISINOPRIL AND HYDROCHLOROTHIAZIDE [Concomitant]
     Active Substance: HYDROCHLOROTHIAZIDE\LISINOPRIL
  67. ACETAMINOPHEN\HYDROCODONE [Concomitant]
     Active Substance: ACETAMINOPHEN\HYDROCODONE
  68. SULFAMETHOXAZOLE\TRIMETHOPRIM [Concomitant]
     Active Substance: SULFAMETHOXAZOLE\TRIMETHOPRIM
  69. AMBIEN [Concomitant]
     Active Substance: ZOLPIDEM TARTRATE
  70. DOXEPIN [Concomitant]
     Active Substance: DOXEPIN
  71. FLUCONAZOLE [Concomitant]
     Active Substance: FLUCONAZOLE
  72. SIMVASTATIN [Concomitant]
     Active Substance: SIMVASTATIN
  73. GABAPENTIN [Concomitant]
     Active Substance: GABAPENTIN
     Route: 065
     Dates: start: 20180404

REACTIONS (15)
  - Fournier^s gangrene [Unknown]
  - Groin abscess [Unknown]
  - Vulval cellulitis [Unknown]
  - Perineal abscess [Unknown]
  - Sepsis [Unknown]
  - Vulval abscess [Unknown]
  - Necrotising fasciitis [Unknown]
  - Abscess [Unknown]
  - Cellulitis [Unknown]
  - Perirectal abscess [Unknown]
  - Anal abscess [Unknown]
  - Folliculitis [Unknown]
  - Subcutaneous abscess [Unknown]
  - Depression [Unknown]
  - Anxiety [Unknown]

NARRATIVE: CASE EVENT DATE: 20150817
